FAERS Safety Report 9929989 (Version 1)
Quarter: 2014Q1

REPORT INFORMATION
  Report Type: Spontaneous
  Country: US (occurrence: US)
  Receive Date: 20140227
  Receipt Date: 20140227
  Transmission Date: 20141002
  Serious: No
  Sender: FDA-Public Use
  Company Number: US-AMGEN-USASP2013071678

PATIENT
  Age: 64 Year
  Sex: Female
  Weight: 58.05 kg

DRUGS (18)
  1. ENBREL [Suspect]
     Indication: PRODUCT USED FOR UNKNOWN INDICATION
     Dosage: 50 MG, ONCE IN A WEEK
     Route: 058
  2. TRAMADOL HCL [Concomitant]
     Dosage: 100 MG, UNK
  3. SULFASALAZIN [Concomitant]
     Dosage: 500 MG, UNK
  4. CELEBREX [Concomitant]
     Dosage: 100 MG, UNK
  5. METHOTREXATE [Concomitant]
     Dosage: 2.5 MG, UNK
  6. LEUCOVORIN CA [Concomitant]
     Dosage: 200 MG, UNK
  7. POTASSIUM [Concomitant]
     Dosage: 75 MG, UNK
  8. VITAMIN C                          /00008001/ [Concomitant]
     Dosage: 500 MG, UNK
  9. CALCIUM +D                         /00944201/ [Concomitant]
     Dosage: UNK
  10. VITAMIN D                          /00107901/ [Concomitant]
     Dosage: 1000 UNIT, UNK
  11. GLUCOSAMINE [Concomitant]
     Dosage: 1000 MG, UNK
  12. FISH OIL [Concomitant]
     Dosage: UNK
  13. ZOFRAN                             /00955301/ [Concomitant]
     Dosage: 24 MG, UNK
  14. SINGULAIR [Concomitant]
     Dosage: 10 MG, UNK
  15. ZYRTEC ALLERGY [Concomitant]
     Dosage: 10 MG, UNK
  16. NASONEX [Concomitant]
     Dosage: 50 MUG, UNK/AC
  17. ASTELIN                            /00085801/ [Concomitant]
     Dosage: 137 MUG, UNK
  18. EEMT [Concomitant]
     Dosage: UNK

REACTIONS (2)
  - Drug effect incomplete [Unknown]
  - Pain [Not Recovered/Not Resolved]
